FAERS Safety Report 6125787-1 (Version None)
Quarter: 2009Q1

REPORT INFORMATION
  Report Type: 
  Country: None (occurrence: None)
  Receive Date: 20090319
  Receipt Date: 20090319
  Transmission Date: 20090719
  Serious: No
  Sender: FDA-Public Use
  Company Number: None

PATIENT
  Age: 28 Year
  Sex: Female
  Weight: 81.6475 kg

DRUGS (2)
  1. CYMBALTA [Suspect]
     Indication: DEPRESSION
     Dates: start: 20080101, end: 20090301
  2. CYMBALTA [Suspect]
     Indication: PAIN
     Dates: start: 20080101, end: 20090301

REACTIONS (3)
  - DEPRESSION SUICIDAL [None]
  - INFLUENZA LIKE ILLNESS [None]
  - WITHDRAWAL SYNDROME [None]
